FAERS Safety Report 8667465 (Version 2)
Quarter: 2013Q4

REPORT INFORMATION
  Report Type: Spontaneous
  Country: US (occurrence: US)
  Receive Date: 20120717
  Receipt Date: 20131101
  Transmission Date: 20140711
  Serious: Yes (Other)
  Sender: FDA-Public Use
  Company Number: US-009507513-1207USA000860

PATIENT
  Sex: Female

DRUGS (2)
  1. FELBATOL [Suspect]
     Dosage: 3 DF, BID
     Route: 048
     Dates: start: 2008
  2. FELBATOL [Suspect]
     Dosage: 1 DF, QD
     Route: 048

REACTIONS (2)
  - Convulsion [Not Recovered/Not Resolved]
  - Intentional drug misuse [Unknown]
